FAERS Safety Report 8781523 (Version 1)
Quarter: 2012Q4

REPORT INFORMATION
  Report Type: 
  Country: GB (occurrence: GB)
  Receive Date: 20120913
  Receipt Date: 20120913
  Transmission Date: 20130627
  Serious: Yes (Death)
  Sender: FDA-Public Use
  Company Number: GB-009507513-1101USA00198

PATIENT

DRUGS (8)
  1. ZESTRIL [Suspect]
  2. QUETIAPINE FUMARATE [Suspect]
     Route: 048
  3. MK-0476 [Suspect]
     Route: 048
  4. MK-0476 [Suspect]
     Route: 048
  5. SODIUM SALICYLATE [Suspect]
     Route: 048
  6. ACETAMINOPHEN [Suspect]
     Route: 048
  7. PROCHLORPERAZINE [Suspect]
     Route: 048
  8. UNSPECIFIED INGREDIENT [Suspect]
     Route: 048

REACTIONS (2)
  - Completed suicide [Fatal]
  - Toxicity to various agents [Fatal]
